FAERS Safety Report 7534882-1 (Version None)
Quarter: 2011Q2

REPORT INFORMATION
  Report Type: 
  Country: None (occurrence: None)
  Receive Date: 20110609
  Receipt Date: 20081117
  Transmission Date: 20111010
  Serious: Yes (Death)
  Sender: FDA-Public Use
  Company Number: PHHY2008CA26676

PATIENT
  Sex: Male

DRUGS (5)
  1. EFFEXOR XR [Concomitant]
     Dates: start: 20020101
  2. SYNTHROID [Concomitant]
     Dates: start: 20020101
  3. DIOVAN [Suspect]
     Indication: HYPERTENSION
     Dosage: 1 DF PER DAY
     Route: 048
     Dates: start: 20070213
  4. ASAPHEN [Concomitant]
     Dates: start: 20020101
  5. ZYPREXA [Concomitant]
     Dosage: 1 DF PER DAY
     Dates: start: 20020101

REACTIONS (2)
  - COLON CANCER [None]
  - ANAEMIA [None]
